FAERS Safety Report 10956762 (Version 1)
Quarter: 2015Q1

REPORT INFORMATION
  Report Type: Spontaneous
  Country: US (occurrence: US)
  Receive Date: 20150326
  Receipt Date: 20150326
  Transmission Date: 20150721
  Serious: No
  Sender: FDA-Public Use
  Company Number: US-MYLANLABS-2014S1015452

PATIENT
  Sex: Female
  Weight: 52.62 kg

DRUGS (3)
  1. EMSAM [Suspect]
     Active Substance: SELEGILINE
     Indication: DEPRESSION
     Dosage: 12 MG,QD
     Route: 062
     Dates: start: 2011
  2. ABILIFY [Concomitant]
     Active Substance: ARIPIPRAZOLE
  3. LAMICTAL [Concomitant]
     Active Substance: LAMOTRIGINE

REACTIONS (5)
  - Phobia of flying [Not Recovered/Not Resolved]
  - Phobia [Not Recovered/Not Resolved]
  - Tobacco user [Not Recovered/Not Resolved]
  - Acrophobia [Not Recovered/Not Resolved]
  - Phobia of driving [Not Recovered/Not Resolved]

NARRATIVE: CASE EVENT DATE: 2011
